FAERS Safety Report 8406874-1 (Version None)
Quarter: 2012Q2

REPORT INFORMATION
  Report Type: 
  Country: None (occurrence: None)
  Receive Date: 20120604
  Receipt Date: 20120521
  Transmission Date: 20120825
  Serious: Yes (Hospitalization)
  Sender: FDA-Public Use
  Company Number: DE-INCYTE CORPORATION-2012IN000865

PATIENT
  Sex: Female
  Weight: 73 kg

DRUGS (9)
  1. CODEINE [Concomitant]
     Dosage: UNK
     Dates: start: 20120504
  2. HYDROCHLOROTHIAZIDE [Concomitant]
  3. INC424 [Suspect]
     Indication: MYELOFIBROSIS
     Dosage: 20 MG, BID
     Route: 048
     Dates: start: 20120512, end: 20120516
  4. ZOLPIDEM [Concomitant]
  5. OPIPRAMOL [Concomitant]
  6. BISOPROLOL FUMARATE [Concomitant]
  7. LACTULOSE [Suspect]
     Indication: CONSTIPATION
     Dosage: 30 ML, UNK
  8. OMEPRAZOLE [Concomitant]
  9. ASPIRIN [Concomitant]

REACTIONS (1)
  - INGUINAL HERNIA, OBSTRUCTIVE [None]
